FAERS Safety Report 10864019 (Version 1)
Quarter: 2015Q1

REPORT INFORMATION
  Report Type: Report from Study
  Country: US (occurrence: US)
  Receive Date: 20150224
  Receipt Date: 20150224
  Transmission Date: 20150721
  Serious: Yes (Hospitalization)
  Sender: FDA-Public Use
  Company Number: US-ACTELION-A-NJ2015-113147

PATIENT
  Age: 58 Year
  Sex: Male

DRUGS (13)
  1. TRANXENE T-TAB [Concomitant]
     Active Substance: CLORAZEPATE DIPOTASSIUM
  2. LORAZEPAM. [Concomitant]
     Active Substance: LORAZEPAM
  3. TEGRETOL [Concomitant]
     Active Substance: CARBAMAZEPINE
  4. ADCIRCA [Concomitant]
     Active Substance: TADALAFIL
  5. FISH OIL [Concomitant]
     Active Substance: FISH OIL
  6. ALENDRONATE [Concomitant]
     Active Substance: ALENDRONATE SODIUM
  7. COREG [Concomitant]
     Active Substance: CARVEDILOL
  8. TYVASO [Concomitant]
     Active Substance: TREPROSTINIL
  9. CALCIUM [Concomitant]
     Active Substance: CALCIUM
  10. VITAMIN D [Concomitant]
     Active Substance: CHOLECALCIFEROL
  11. MULTIVITAMIN [Concomitant]
     Active Substance: VITAMINS
  12. TRACLEER [Suspect]
     Active Substance: BOSENTAN\BOSENTAN MONOHYDRATE
     Indication: PULMONARY ARTERIAL HYPERTENSION
     Dosage: UNK
     Route: 048
  13. CEPHALEXIN. [Concomitant]
     Active Substance: CEPHALEXIN

REACTIONS (2)
  - Influenza [Unknown]
  - Pneumonia [Unknown]
